FAERS Safety Report 6878124-9 (Version None)
Quarter: 2010Q2

REPORT INFORMATION
  Report Type: 
  Country: None (occurrence: None)
  Receive Date: 20100616
  Receipt Date: 20100318
  Transmission Date: 20101027
  Serious: No
  Sender: FDA-Public Use
  Company Number: DSA_42814_2010

PATIENT
  Sex: Female

DRUGS (7)
  1. XENAZINE [Suspect]
     Indication: DYSKINESIA
     Dosage: 25 MG TID ORAL
     Route: 048
  2. HALDOL [Concomitant]
  3. LYRICA [Concomitant]
  4. DIOVAN [Concomitant]
  5. SYNTHROID [Concomitant]
  6. METFORMIN HCL [Concomitant]
  7. TRAZODONE [Concomitant]

REACTIONS (3)
  - ABNORMAL BEHAVIOUR [None]
  - AGITATION [None]
  - DECREASED INTEREST [None]
